FAERS Safety Report 10481850 (Version 1)
Quarter: 2014Q3

REPORT INFORMATION
  Report Type: Spontaneous
  Country: US (occurrence: None)
  Receive Date: 20140908
  Receipt Date: 20140908
  Transmission Date: 20150326
  Serious: Yes (Other)
  Sender: FDA-Public Use
  Company Number: 391265

PATIENT
  Age: 63 Year
  Sex: Female
  Weight: 93.4 kg

DRUGS (3)
  1. METFORMIN(METFORMIN) [Concomitant]
  2. VICTOZA [Suspect]
     Active Substance: LIRAGLUTIDE
     Route: 058
  3. LANTUS [Concomitant]
     Active Substance: INSULIN GLARGINE

REACTIONS (2)
  - Pancreatitis [None]
  - Weight decreased [None]

NARRATIVE: CASE EVENT DATE: 20130912
